FAERS Safety Report 10981769 (Version 1)
Quarter: 2015Q1

REPORT INFORMATION
  Report Type: Spontaneous
  Country: US (occurrence: None)
  Receive Date: 20150227
  Receipt Date: 20150227
  Transmission Date: 20150721
  Serious: Yes (Hospitalization)
  Sender: FDA-Public Use
  Company Number: LMI-2014-00022

PATIENT
  Age: 83 Year
  Sex: Male
  Weight: 95.26 kg

DRUGS (2)
  1. DEFINITY [Suspect]
     Active Substance: PERFLUTREN
     Indication: ECHOCARDIOGRAM
     Dosage: (UNDILUTED DEFINITY) (0.2 ML, 1 IN 1 D), INTRAVENOUS BOLUS
     Route: 040
     Dates: start: 20140114, end: 20140114
  2. DEFINITY [Suspect]
     Active Substance: PERFLUTREN
     Indication: ECHOCARDIOGRAM
     Route: 040
     Dates: start: 20140114, end: 20140114

REACTIONS (1)
  - Presyncope [None]

NARRATIVE: CASE EVENT DATE: 20140114
